FAERS Safety Report 5367292-6 (Version None)
Quarter: 2007Q2

REPORT INFORMATION
  Report Type: 
  Country: None (occurrence: None)
  Receive Date: 20070622
  Receipt Date: 20070614
  Transmission Date: 20071010
  Serious: Yes (Other)
  Sender: FDA-Public Use
  Company Number: FR-BRISTOL-MYERS SQUIBB COMPANY-13822416

PATIENT
  Sex: Female

DRUGS (1)
  1. HOLOXAN [Suspect]
     Indication: LEIOMYOSARCOMA

REACTIONS (1)
  - ENCEPHALOPATHY [None]
